FAERS Safety Report 16339801 (Version 5)
Quarter: 2020Q1

REPORT INFORMATION
  Report Type: Report from Study
  Country: US (occurrence: US)
  Receive Date: 20190521
  Receipt Date: 20200210
  Transmission Date: 20200409
  Serious: Yes (Hospitalization)
  Sender: FDA-Public Use
  Company Number: US-ACTELION-A-US2019-190600

PATIENT
  Age: 67 Year
  Sex: Male

DRUGS (12)
  1. UPTRAVI [Suspect]
     Active Substance: SELEXIPAG
     Dosage: 200 MCG, BID
     Route: 048
     Dates: start: 2018
  2. UPTRAVI [Suspect]
     Active Substance: SELEXIPAG
     Dosage: 600 MCG, BID
     Route: 048
     Dates: start: 2018
  3. INSULIN [Concomitant]
     Active Substance: INSULIN NOS
  4. LEVOTHYROXINE. [Concomitant]
     Active Substance: LEVOTHYROXINE
     Dosage: UNK
  5. UPTRAVI [Suspect]
     Active Substance: SELEXIPAG
     Indication: PULMONARY ARTERIAL HYPERTENSION
     Dosage: 400 MCG, BID
     Route: 048
     Dates: start: 20190222
  6. ASPIRIN. [Concomitant]
     Active Substance: ASPIRIN
  7. LEVAQUIN [Concomitant]
     Active Substance: LEVOFLOXACIN
  8. SYMBICORT [Concomitant]
     Active Substance: BUDESONIDE\FORMOTEROL FUMARATE DIHYDRATE
     Dosage: UNK, BID
  9. LIPITOR [Concomitant]
     Active Substance: ATORVASTATIN CALCIUM
     Dosage: UNK
  10. LASIX [Concomitant]
     Active Substance: FUROSEMIDE
  11. SILDENAFIL. [Concomitant]
     Active Substance: SILDENAFIL
     Dosage: 200 MCG, TID
  12. UPTRAVI [Suspect]
     Active Substance: SELEXIPAG
     Dosage: 800 MCG, BID
     Route: 048

REACTIONS (15)
  - Sinusitis [Unknown]
  - Cardiac failure congestive [Unknown]
  - Fluid overload [Unknown]
  - Diabetes mellitus [Unknown]
  - Fluid retention [Unknown]
  - Pain in extremity [Recovered/Resolved]
  - Ageusia [Recovered/Resolved]
  - Blood glucose increased [Unknown]
  - Eye pain [Recovered/Resolved]
  - Pneumonia [Unknown]
  - Photophobia [Recovered/Resolved]
  - Condition aggravated [Recovered/Resolved]
  - Subdural haematoma [Unknown]
  - Chest pain [Recovered/Resolved]
  - Visual impairment [Unknown]

NARRATIVE: CASE EVENT DATE: 2018
